FAERS Safety Report 5813726-X (Version None)
Quarter: 2008Q3

REPORT INFORMATION
  Report Type: 
  Country: None (occurrence: None)
  Receive Date: 20080717
  Receipt Date: 20080709
  Transmission Date: 20090109
  Serious: Yes (Hospitalization)
  Sender: FDA-Public Use
  Company Number: AU-ROCHE-499385

PATIENT
  Sex: Male
  Weight: 111 kg

DRUGS (5)
  1. CAPECITABINE [Suspect]
     Dosage: GIVEN ON DAYS 1 - 14 OF A THREE WEEK CYCLE.
     Route: 048
     Dates: start: 20061130
  2. CAPECITABINE [Suspect]
     Dosage: GIVEN ON DAYS 1 - 14 OF A THREE WEEK CYCLE.
     Route: 048
  3. BEVACIZUMAB [Suspect]
     Route: 042
     Dates: start: 20061130
  4. ATENOLOL [Concomitant]
     Route: 048
     Dates: start: 20070716
  5. TENORMIN [Concomitant]
     Route: 048
     Dates: start: 20070702

REACTIONS (2)
  - TENDON INJURY [None]
  - WOUND DECOMPOSITION [None]
